FAERS Safety Report 6285145-6 (Version None)
Quarter: 2009Q3

REPORT INFORMATION
  Report Type: 
  Country: None (occurrence: None)
  Receive Date: 20090727
  Receipt Date: 20090715
  Transmission Date: 20100115
  Serious: Yes (Hospitalization)
  Sender: FDA-Public Use
  Company Number: FR-PFIZER INC-2009240380

PATIENT
  Age: 15 Year

DRUGS (4)
  1. ZITHROMAX [Suspect]
     Indication: CAMPYLOBACTER INFECTION
     Dosage: UNK
     Route: 048
     Dates: start: 20090517, end: 20090519
  2. DEFERASIROX [Suspect]
     Dosage: UNK
     Route: 048
     Dates: start: 20090427
  3. HYDREA [Suspect]
     Dosage: UNK
     Route: 048
     Dates: start: 20090427
  4. ROCEPHIN [Suspect]
     Indication: PYREXIA
     Dosage: 1 G, 1X/DAY
     Route: 042
     Dates: start: 20090513, end: 20090515

REACTIONS (5)
  - CYTOLYTIC HEPATITIS [None]
  - HEPATOMEGALY [None]
  - JAUNDICE CHOLESTATIC [None]
  - PANCREATITIS [None]
  - PYREXIA [None]
